FAERS Safety Report 13048200 (Version 2)
Quarter: 2017Q1

REPORT INFORMATION
  Report Type: Report from Study
  Country: US (occurrence: US)
  Receive Date: 20161220
  Receipt Date: 20170124
  Transmission Date: 20170428
  Serious: Yes (Hospitalization, Other)
  Sender: FDA-Public Use
  Company Number: US-BAUSCH-BL-2016-031727

PATIENT
  Age: 66 Year
  Sex: Female
  Weight: 52.21 kg

DRUGS (8)
  1. XIFAXAN [Suspect]
     Active Substance: RIFAXIMIN
     Indication: PORTAL HYPERTENSION
  2. HYDROXYZINE [Concomitant]
     Active Substance: HYDROXYZINE HYDROCHLORIDE
     Indication: PRURITUS
     Dosage: AS NEEDED
     Route: 048
  3. NADOLOL. [Concomitant]
     Active Substance: NADOLOL
     Indication: DIURETIC THERAPY
     Route: 048
  4. FUROSEMIDE. [Concomitant]
     Active Substance: FUROSEMIDE
     Indication: DIURETIC THERAPY
     Route: 048
  5. GLIMEPIRIDE. [Suspect]
     Active Substance: GLIMEPIRIDE
     Indication: PRODUCT USED FOR UNKNOWN INDICATION
     Route: 065
  6. SPIRONOLACTONE. [Concomitant]
     Active Substance: SPIRONOLACTONE
     Indication: DIURETIC THERAPY
     Route: 048
  7. ALPRAZOLAM. [Concomitant]
     Active Substance: ALPRAZOLAM
     Indication: ANXIETY
     Dosage: IN EVENING
     Route: 048
  8. XIFAXAN [Suspect]
     Active Substance: RIFAXIMIN
     Indication: HEPATIC CIRRHOSIS
     Route: 048
     Dates: start: 201607, end: 20161106

REACTIONS (10)
  - Nervousness [Unknown]
  - Cholecystitis infective [Unknown]
  - Agitation [Unknown]
  - Decreased appetite [Unknown]
  - Vomiting [Unknown]
  - Abnormal behaviour [Unknown]
  - Psychiatric symptom [Unknown]
  - Treatment noncompliance [Unknown]
  - Pyrexia [Unknown]
  - Weight decreased [Unknown]

NARRATIVE: CASE EVENT DATE: 2016
